FAERS Safety Report 9167482 (Version 1)
Quarter: 2013Q1

REPORT INFORMATION
  Report Type: Spontaneous
  Country: US (occurrence: US)
  Receive Date: 20130318
  Receipt Date: 20130318
  Transmission Date: 20140127
  Serious: No
  Sender: FDA-Public Use
  Company Number: US-BAYER-2013-030280

PATIENT
  Age: 39 Year
  Sex: Female
  Weight: 58.41 kg

DRUGS (1)
  1. YAZ [Suspect]

REACTIONS (1)
  - Thrombophlebitis superficial [None]
